FAERS Safety Report 19170028 (Version 4)
Quarter: 2021Q2

REPORT INFORMATION
  Report Type: Report from Study
  Country: DE (occurrence: DE)
  Receive Date: 20210422
  Receipt Date: 20210617
  Transmission Date: 20210717
  Serious: Yes (Hospitalization, Other)
  Sender: FDA-Public Use
  Company Number: DE-EXELIXIS-XL18421039430

PATIENT
  Age: 55 Year
  Sex: Male
  Weight: 84 kg

DRUGS (16)
  1. OPIPRAMOL [Concomitant]
     Active Substance: OPIPRAMOL
  2. NOVALGIN [Concomitant]
  3. XL184 [Suspect]
     Active Substance: CABOZANTINIB
     Dosage: 20 MG, QD
     Route: 048
     Dates: start: 20210518
  4. IPILIMUMAB [Suspect]
     Active Substance: IPILIMUMAB
     Indication: RENAL CELL CARCINOMA
     Dosage: 1 MG/KG, Q3WEEKS, 4 DOSES
     Route: 042
     Dates: start: 20201029
  5. NIVOLUMAB [Suspect]
     Active Substance: NIVOLUMAB
     Indication: RENAL CELL CARCINOMA
     Dosage: 3 MG/KG, Q3WEEKS, 4 DOSES
     Route: 042
     Dates: start: 20201029
  6. ASPIRIN. [Concomitant]
     Active Substance: ASPIRIN
  7. XL184 [Suspect]
     Active Substance: CABOZANTINIB
     Indication: RENAL CELL CARCINOMA
     Dosage: 40 MG, QD
     Route: 048
     Dates: start: 20201029
  8. NIVOLUMAB [Suspect]
     Active Substance: NIVOLUMAB
     Dosage: 480 MG, FLAT DOSE, Q4WEEKS
     Route: 042
     Dates: start: 20201029
  9. SIMVASTATIN. [Concomitant]
     Active Substance: SIMVASTATIN
  10. ZOLPIDEM [Concomitant]
     Active Substance: ZOLPIDEM TARTRATE
  11. METOPROLOL. [Concomitant]
     Active Substance: METOPROLOL
  12. INNOHEP [Concomitant]
     Active Substance: TINZAPARIN SODIUM
  13. ENALAPRIL [Concomitant]
     Active Substance: ENALAPRIL
  14. MAGNESIUM VERLA [Concomitant]
     Active Substance: MAGNESIUM
  15. SERTRALINE [Concomitant]
     Active Substance: SERTRALINE HYDROCHLORIDE
  16. KREON [Concomitant]
     Active Substance: PANCRELIPASE

REACTIONS (2)
  - Pneumonitis [Recovering/Resolving]
  - Autoimmune colitis [Recovering/Resolving]

NARRATIVE: CASE EVENT DATE: 20210412
